FAERS Safety Report 10238663 (Version 1)
Quarter: 2014Q2

REPORT INFORMATION
  Report Type: Spontaneous
  Country: US (occurrence: US)
  Receive Date: 20140616
  Receipt Date: 20140616
  Transmission Date: 20141212
  Serious: Yes (Other)
  Sender: FDA-Public Use
  Company Number: US-ENDO PHARMACEUTICALS INC.-OPCR20140126

PATIENT
  Sex: Female

DRUGS (1)
  1. OPANA ER 40MG [Suspect]
     Indication: PRODUCT USED FOR UNKNOWN INDICATION
     Route: 048
     Dates: start: 2014

REACTIONS (3)
  - Drug abuse [Recovered/Resolved]
  - Drug screen positive [Not Recovered/Not Resolved]
  - Drug screen negative [Not Recovered/Not Resolved]
